FAERS Safety Report 25634740 (Version 4)
Quarter: 2025Q3

REPORT INFORMATION
  Report Type: Spontaneous
  Country: JP (occurrence: JP)
  Receive Date: 20250801
  Receipt Date: 20250911
  Transmission Date: 20251021
  Serious: Yes (Life-Threatening)
  Sender: NX DEVELOPMENT CORPORATION
  Company Number: JP-sbiph-S000200210P

PATIENT
  Age: 49 Year
  Sex: Male
  Weight: 73 kg

DRUGS (2)
  1. AMINOLEVULINIC ACID HYDROCHLORIDE [Suspect]
     Active Substance: AMINOLEVULINIC ACID HYDROCHLORIDE
     Indication: Photodynamic diagnostic procedure
     Dosage: 20.4MG/KG/1 DAY
     Route: 048
     Dates: start: 20250724, end: 20250724
  2. EPHEDRINE HYDROCHLORIDE [Suspect]
     Active Substance: EPHEDRINE HYDROCHLORIDE
     Indication: Product used for unknown indication
     Dosage: 8MG/1DAY(S)
     Route: 050
     Dates: start: 20250724, end: 20250724

REACTIONS (3)
  - Cardiac arrest [Recovered/Resolved]
  - Bradycardia [Recovered/Resolved]
  - Blood pressure decreased [Recovered/Resolved]

NARRATIVE: CASE EVENT DATE: 20250724
